FAERS Safety Report 10230041 (Version 1)
Quarter: 2014Q2

REPORT INFORMATION
  Report Type: Spontaneous
  Country: US (occurrence: US)
  Receive Date: 20140611
  Receipt Date: 20140611
  Transmission Date: 20141212
  Serious: No
  Sender: FDA-Public Use
  Company Number: US-ABBVIE-14P-163-1208863-00

PATIENT
  Age: 74 Year
  Sex: Female
  Weight: 78.09 kg

DRUGS (9)
  1. K-TAB [Suspect]
     Indication: BLOOD POTASSIUM DECREASED
     Dates: start: 201401, end: 20140201
  2. K-TAB [Suspect]
     Dates: start: 20140201
  3. AMARYL [Concomitant]
     Indication: DIABETES MELLITUS
  4. LISINOPRIL [Concomitant]
     Indication: HYPERTENSION
  5. FAMOTIDINE [Concomitant]
     Indication: GASTROOESOPHAGEAL REFLUX DISEASE
  6. GABAPENTIN [Concomitant]
     Indication: ARTHRALGIA
  7. TIZANIDINE [Concomitant]
     Indication: BACK PAIN
  8. HYDROCODONE [Concomitant]
     Indication: BACK PAIN
  9. PLAQUENIL [Concomitant]
     Indication: ARTHRITIS

REACTIONS (3)
  - Device colour issue [Not Recovered/Not Resolved]
  - Blood potassium decreased [Unknown]
  - Drug ineffective [Unknown]
